FAERS Safety Report 20707955 (Version 1)
Quarter: 2022Q2

REPORT INFORMATION
  Report Type: Spontaneous
  Country: FR (occurrence: None)
  Receive Date: 20220414
  Receipt Date: 20220414
  Transmission Date: 20220721
  Serious: Yes (Other)
  Sender: FDA-Public Use
  Company Number: 2022A122951

PATIENT
  Age: 23310 Day
  Sex: Female
  Weight: 57 kg

DRUGS (5)
  1. TAGRISSO [Suspect]
     Active Substance: OSIMERTINIB
     Indication: Adenosquamous cell lung cancer
     Route: 048
     Dates: start: 20201014
  2. LETROZOLE [Concomitant]
     Active Substance: LETROZOLE
     Dosage: 2.5 AT 1 TABLET IN THE EVENING
     Route: 065
  3. TEMESTA [Concomitant]
     Dosage: 1.5 AT 1 TABLET IN THE EVENING1
     Route: 065
  4. LATANOPROST [Concomitant]
     Active Substance: LATANOPROST
     Dosage: IN THE EVENING
     Route: 065
  5. OROCAL [Concomitant]
     Route: 065

REACTIONS (4)
  - Ingrowing nail [Recovered/Resolved with Sequelae]
  - Nail discolouration [Unknown]
  - Paronychia [Unknown]
  - Onychalgia [Unknown]

NARRATIVE: CASE EVENT DATE: 20201102
